FAERS Safety Report 8921956 (Version 1)
Quarter: 2012Q4

REPORT INFORMATION
  Report Type: Spontaneous
  Country: US (occurrence: None)
  Receive Date: 20121119
  Receipt Date: 20121119
  Transmission Date: 20130627
  Serious: No
  Sender: FDA-Public Use
  Company Number: None

PATIENT
  Age: 32 Year
  Sex: Female
  Weight: 66.68 kg

DRUGS (1)
  1. MIRENA [Suspect]
     Dosage: 1 insert 3 years intracervical
     Route: 019
     Dates: start: 20101012, end: 20121012

REACTIONS (5)
  - Discomfort [None]
  - Back pain [None]
  - Headache [None]
  - Vaginal odour [None]
  - Uterine disorder [None]
